FAERS Safety Report 10310186 (Version 5)
Quarter: 2014Q4

REPORT INFORMATION
  Report Type: Spontaneous
  Country: JP (occurrence: JP)
  Receive Date: 20140717
  Receipt Date: 20141031
  Transmission Date: 20150528
  Serious: Yes (Hospitalization, Other)
  Sender: FDA-Public Use
  Company Number: JP-TEVA-492857ISR

PATIENT
  Age: 84 Year
  Sex: Female
  Weight: 43.7 kg

DRUGS (5)
  1. ACICLOVIR [Suspect]
     Active Substance: ACYCLOVIR
     Indication: HERPES ZOSTER
     Dosage: 1000 MILLIGRAM DAILY;
     Route: 041
     Dates: start: 20140530, end: 20140606
  2. SOLDEM 3A [Concomitant]
     Active Substance: CARBOHYDRATES\POTASSIUM CHLORIDE\SODIUM CHLORIDE\SODIUM LACTATE
     Dosage: 1000 ML DAILY;
     Route: 041
     Dates: start: 20140613, end: 20140630
  3. BFLUID INJECTION [Concomitant]
     Active Substance: AMINO ACIDS\DEXTROSE\ELECTROLYTES NOS\VITAMINS
     Indication: NUTRITIONAL SUPPLEMENTATION
     Dosage: 1000 ML DAILY;
     Route: 041
     Dates: start: 20140514, end: 20140722
  4. SUBVITAN [Concomitant]
     Indication: NUTRITIONAL SUPPLEMENTATION
     Dosage: 5 ML DAILY;
     Route: 041
     Dates: start: 20140514, end: 20140722
  5. (TS)RANITIDINE INJECTION SOLUTION 50MG ^TAIYO^,INJ,2.5%2ML1AMPOULE [Suspect]
     Active Substance: RANITIDINE HYDROCHLORIDE
     Indication: GASTRITIS
     Dosage: 50 MILLIGRAM DAILY;
     Route: 041
     Dates: start: 20140531, end: 20140612

REACTIONS (5)
  - Agranulocytosis [Recovered/Resolved]
  - Respiratory disorder [Unknown]
  - Vomiting [Unknown]
  - Depressed level of consciousness [Unknown]
  - Pyrexia [Unknown]

NARRATIVE: CASE EVENT DATE: 20140609
